FAERS Safety Report 15837878 (Version 2)
Quarter: 2020Q1

REPORT INFORMATION
  Report Type: Report from Study
  Country: DE (occurrence: DE)
  Receive Date: 20190117
  Receipt Date: 20200302
  Transmission Date: 20200409
  Serious: Yes (Hospitalization)
  Sender: FDA-Public Use
  Company Number: DE-ROCHE-2243089

PATIENT
  Age: 44 Year
  Sex: Female
  Weight: 61 kg

DRUGS (7)
  1. PARACETAMOL [Concomitant]
     Active Substance: ACETAMINOPHEN
     Dosage: ANTIPYRETIC DRUG, PREMEDICATION BEFORE OCREVUS - ADMINISTRATION ONLY ON INFUSION DAYS.
     Route: 048
     Dates: start: 20180517
  2. OCRELIZUMAB. [Suspect]
     Active Substance: OCRELIZUMAB
     Indication: MULTIPLE SCLEROSIS
     Dosage: DATE OF MOST RECENT DOSE: 30/MAY/2018
     Route: 042
     Dates: start: 20180517
  3. FENISTIL [Concomitant]
     Active Substance: DIMETHINDENE
     Dosage: INDICATION: ANTIHISTAMINE, PREMEDICATION BEFORE OCREVUS ADMINISTRATION - ADMINISTRATION ONLY ON INFU
     Route: 042
     Dates: start: 20180517
  4. PREDNISOLUT [PREDNISOLONE HEMISUCCINATE] [Concomitant]
     Dosage: STOMACH PROTECTION, ONLY AS CONCOMITANT MEDICATION FOR OCREVUS ADMINISTRATION ONLY.
     Route: 042
     Dates: start: 20180517
  5. UNIZINK [Concomitant]
     Active Substance: AVOBENZONE\HOMOSALATE\OCTISALATE
     Dosage: INDICATION: DIETARY SUPPLEMENTS
     Route: 048
     Dates: start: 20180501
  6. NOVOTHYRAL [Concomitant]
     Active Substance: LEVOTHYROXINE SODIUM\LIOTHYRONINE SODIUM
     Indication: THYROID DISORDER
     Route: 048
  7. PANTOZOL [Concomitant]
     Active Substance: PANTOPRAZOLE SODIUM
     Dosage: INDICATION: STOMACH PROTECTION, ONLY AS CONCOMITANT MEDICATION FOR OCREVUS ADMINISTRATION ONLY.
     Route: 048
     Dates: start: 20180524

REACTIONS (1)
  - Appendicitis [Recovered/Resolved]

NARRATIVE: CASE EVENT DATE: 20181102
